FAERS Safety Report 7911100-3 (Version None)
Quarter: 2011Q4

REPORT INFORMATION
  Report Type: 
  Country: None (occurrence: None)
  Receive Date: 20111108
  Receipt Date: 20111102
  Transmission Date: 20120403
  Serious: Yes (Hospitalization)
  Sender: FDA-Public Use
  Company Number: CLOF-1000654

PATIENT
  Age: 72 Year
  Sex: Male

DRUGS (9)
  1. DAUNORUBICIN HCL [Suspect]
     Indication: ACUTE MYELOID LEUKAEMIA
     Dates: start: 20090525
  2. MULTIVITAMIN [Concomitant]
  3. FLUCONAZOLE [Concomitant]
  4. CIPROFLOXACIN [Concomitant]
  5. IMOCLONE (ZOPICLONE) [Concomitant]
  6. FLUDARA [Suspect]
     Indication: ACUTE MYELOID LEUKAEMIA
  7. CLINDAMYCIN HCL [Concomitant]
  8. PINEX (PARACETAMOL) [Concomitant]
  9. EVLOLTRA (CLOFARABINE) SOLUTION FOR INFUSION [Suspect]
     Indication: ACUTE MYELOID LEUKAEMIA
     Dates: start: 20090525

REACTIONS (9)
  - DEEP VEIN THROMBOSIS [None]
  - BLOOD ALKALINE PHOSPHATASE INCREASED [None]
  - NEUTROPENIA [None]
  - ALANINE AMINOTRANSFERASE INCREASED [None]
  - BACTERAEMIA [None]
  - CATHETER SITE INFECTION [None]
  - GASTRITIS [None]
  - BLOOD LACTATE DEHYDROGENASE INCREASED [None]
  - C-REACTIVE PROTEIN INCREASED [None]
